FAERS Safety Report 6402208-2 (Version None)
Quarter: 2009Q4

REPORT INFORMATION
  Report Type: 
  Country: None (occurrence: None)
  Receive Date: 20091013
  Receipt Date: 20091001
  Transmission Date: 20100525
  Serious: Yes (Hospitalization)
  Sender: FDA-Public Use
  Company Number: CIP09002518

PATIENT
  Age: 69 Year
  Sex: Female
  Weight: 40.9 kg

DRUGS (2)
  1. ACTONEL [Suspect]
     Dosage: 150 MG ONCE MONTHLY, ORAL; 250 MG, DAILY, ORAL
     Route: 048
     Dates: start: 20090201
  2. AZITHROMYCIN [Suspect]
     Indication: PNEUMONIA
     Dosage: 500/250 MG DAILY, ORAL
     Route: 048

REACTIONS (4)
  - BLOOD ALKALINE PHOSPHATASE INCREASED [None]
  - CHRONIC OBSTRUCTIVE PULMONARY DISEASE [None]
  - HEPATIC ENZYME INCREASED [None]
  - PNEUMONIA [None]
